FAERS Safety Report 10161281 (Version 1)
Quarter: 2014Q2

REPORT INFORMATION
  Report Type: Spontaneous
  Country: US (occurrence: US)
  Receive Date: 20140508
  Receipt Date: 20140508
  Transmission Date: 20141212
  Serious: Yes (Hospitalization, Other)
  Sender: FDA-Public Use
  Company Number: US-ROCHE-1396662

PATIENT
  Age: 40 Year
  Sex: Female

DRUGS (6)
  1. KLONOPIN [Suspect]
     Indication: ANXIETY
     Route: 065
  2. KLONOPIN [Suspect]
     Indication: PANIC ATTACK
     Dosage: 0.5-1 MG AT AT BEDTIME
     Route: 065
     Dates: start: 20130208
  3. KLONOPIN [Suspect]
     Route: 065
     Dates: start: 20130504, end: 20130531
  4. PRISTIQ [Suspect]
     Indication: ANXIETY
     Route: 048
     Dates: start: 20120807
  5. PRISTIQ [Suspect]
     Indication: PANIC ATTACK
     Route: 048
     Dates: start: 20130314, end: 20130415
  6. CELEBREX [Concomitant]
     Indication: ARTHRALGIA
     Route: 048

REACTIONS (3)
  - Convulsion [Recovered/Resolved]
  - Convulsion [Recovered/Resolved]
  - Drug hypersensitivity [Unknown]
